FAERS Safety Report 4741808-2 (Version None)
Quarter: 2005Q3

REPORT INFORMATION
  Report Type: 
  Country: None (occurrence: None)
  Receive Date: 20050801
  Receipt Date: 20050620
  Transmission Date: 20060218
  Serious: No
  Sender: FDA-Public Use
  Company Number: 2005PV000093

PATIENT
  Age: 49 Year
  Sex: Male
  Weight: 96.6162 kg

DRUGS (8)
  1. BYETTA [Suspect]
     Indication: DIABETES MELLITUS NON-INSULIN-DEPENDENT
     Dosage: 5 UG;BID;SC
     Route: 058
     Dates: start: 20050615
  2. ASPIRIN [Concomitant]
  3. MULTIVIT [Concomitant]
  4. ACTOS [Concomitant]
  5. CADUET [Concomitant]
  6. MICARDIS [Concomitant]
  7. LANTUS [Concomitant]
  8. PRILOSEC [Concomitant]

REACTIONS (3)
  - DRY MOUTH [None]
  - NOCTURIA [None]
  - POLLAKIURIA [None]
